FAERS Safety Report 9002929 (Version 2)
Quarter: 2013Q1

REPORT INFORMATION
  Report Type: Spontaneous
  Country: US (occurrence: US)
  Receive Date: 20130108
  Receipt Date: 20130122
  Transmission Date: 20140127
  Serious: Yes (Death)
  Sender: FDA-Public Use
  Company Number: US-PFIZER INC-2013004373

PATIENT
  Age: 50 Year
  Sex: Female

DRUGS (4)
  1. ALPRAZOLAM [Suspect]
     Dosage: UNK
  2. DONEPEZIL HYDROCHLORIDE [Suspect]
     Dosage: UNK
  3. HYDROXYZINE PAMOATE [Suspect]
     Dosage: UNK
  4. BUPROPION [Suspect]
     Dosage: UNK

REACTIONS (2)
  - Death [Fatal]
  - Toxicity to various agents [Fatal]
